FAERS Safety Report 6544441-5 (Version None)
Quarter: 2010Q1

REPORT INFORMATION
  Report Type: 
  Country: None (occurrence: None)
  Receive Date: 20100120
  Receipt Date: 20100120
  Transmission Date: 20100710
  Serious: Yes (Hospitalization)
  Sender: FDA-Public Use
  Company Number: None

PATIENT
  Age: 58 Year
  Sex: Female
  Weight: 96 kg

DRUGS (2)
  1. SOLIRIS [Suspect]
     Indication: PROPHYLAXIS AGAINST TRANSPLANT REJECTION
     Dosage: 1200 MG ONCE IV
     Route: 042
     Dates: start: 20100108
  2. SOLIRIS [Suspect]
     Dosage: 600 MG ONCE IV
     Route: 042
     Dates: start: 20100109

REACTIONS (2)
  - HYPERTENSION [None]
  - TREATMENT NONCOMPLIANCE [None]
